FAERS Safety Report 7426357-5 (Version None)
Quarter: 2011Q2

REPORT INFORMATION
  Report Type: 
  Country: None (occurrence: None)
  Receive Date: 20110420
  Receipt Date: 20110413
  Transmission Date: 20111010
  Serious: Yes (Disabling)
  Sender: FDA-Public Use
  Company Number: B0587262A

PATIENT
  Sex: Female

DRUGS (3)
  1. SUMATRIPTAN SUCCINATE [Suspect]
     Route: 065
  2. SYMBICORT [Concomitant]
     Indication: ASTHMA PROPHYLAXIS
  3. ANTI-HYPERCHOLESTEROLAEMIC [Concomitant]

REACTIONS (13)
  - BLINDNESS UNILATERAL [None]
  - CEREBROVASCULAR ACCIDENT [None]
  - VISUAL IMPAIRMENT [None]
  - VISUAL FIELD DEFECT [None]
  - ASTHMA [None]
  - LACRIMATION INCREASED [None]
  - DISTURBANCE IN ATTENTION [None]
  - VASCULAR INJURY [None]
  - MEMORY IMPAIRMENT [None]
  - BRAIN DEATH [None]
  - DISABILITY [None]
  - MIGRAINE [None]
  - OVERDOSE [None]
